FAERS Safety Report 4692175-4 (Version None)
Quarter: 2005Q2

REPORT INFORMATION
  Report Type: 
  Country: None (occurrence: None)
  Receive Date: 20050615
  Receipt Date: 20050602
  Transmission Date: 20051028
  Serious: Yes (Hospitalization, Other)
  Sender: FDA-Public Use
  Company Number: 2005081377

PATIENT
  Age: 69 Year
  Sex: Female

DRUGS (8)
  1. SERTRALINE HCL [Suspect]
     Indication: DEPRESSION
     Dosage: 50 MG (50 MG, 1 IN 1 D), ORAL
     Route: 048
     Dates: start: 20000101
  2. CHEMOTHERAPY NOS (CHEMOTHERAPY NOS) [Concomitant]
  3. ANTIHYPERTENSIVES (ANTIHYPERTENSIVES) [Concomitant]
  4. IMOVANE (ZOPICLONE) [Concomitant]
  5. NEXIUM [Concomitant]
  6. VOLTAREN [Concomitant]
  7. MANDOLGIN (TRAMADOL) [Concomitant]
  8. TOLMIN (MIANSERIN HYDROCHLORIDE) [Concomitant]

REACTIONS (6)
  - BREAST CANCER [None]
  - FATIGUE [None]
  - HYPERHIDROSIS [None]
  - OEDEMA [None]
  - PALPITATIONS [None]
  - WEIGHT INCREASED [None]
